FAERS Safety Report 16736015 (Version 1)
Quarter: 2019Q3

REPORT INFORMATION
  Report Type: Spontaneous
  Country: CA (occurrence: CA)
  Receive Date: 20190823
  Receipt Date: 20190823
  Transmission Date: 20191005
  Serious: Yes (Other)
  Sender: FDA-Public Use
  Company Number: CA-TEVA-2019-CA-1097276

PATIENT
  Age: 29 Year
  Sex: Female

DRUGS (6)
  1. PREDNISONE. [Concomitant]
     Active Substance: PREDNISONE
     Dosage: 40 MILLIGRAM DAILY;
  2. XELJANZ [Suspect]
     Active Substance: TOFACITINIB CITRATE
     Indication: COLITIS ULCERATIVE
     Dosage: 20 MILLIGRAM DAILY;
     Route: 048
  3. VEDOLIZUMAB [Concomitant]
     Active Substance: VEDOLIZUMAB
  4. METHOTREXATE. [Suspect]
     Active Substance: METHOTREXATE
     Indication: PRODUCT USED FOR UNKNOWN INDICATION
     Dosage: 25 MILLIGRAM, 1 EVERY 1 WEESK
     Route: 058
  5. XELJANZ [Suspect]
     Active Substance: TOFACITINIB CITRATE
     Indication: RHEUMATOID ARTHRITIS
     Dosage: 20 MILLIGRAM DAILY;
     Route: 048
  6. PREDNISONE. [Concomitant]
     Active Substance: PREDNISONE
     Dosage: 25 MILLIGRAM DAILY;

REACTIONS (7)
  - Pharyngitis streptococcal [Not Recovered/Not Resolved]
  - Pyrexia [Not Recovered/Not Resolved]
  - Dehydration [Not Recovered/Not Resolved]
  - Therapeutic product effect incomplete [Not Recovered/Not Resolved]
  - Epinephrine decreased [Not Recovered/Not Resolved]
  - Haematochezia [Not Recovered/Not Resolved]
  - Heart rate increased [Not Recovered/Not Resolved]
